FAERS Safety Report 7884022-4 (Version None)
Quarter: 2011Q4

REPORT INFORMATION
  Report Type: 
  Country: None (occurrence: None)
  Receive Date: 20111102
  Receipt Date: 20111019
  Transmission Date: 20120403
  Serious: Yes (Other)
  Sender: FDA-Public Use
  Company Number: PHEH2011US07515

PATIENT

DRUGS (3)
  1. ALENDRONATE SODIUM [Suspect]
  2. FOSAMAX [Suspect]
  3. RECLAST [Suspect]
     Route: 042

REACTIONS (8)
  - STRESS FRACTURE [None]
  - FEMUR FRACTURE [None]
  - PAIN [None]
  - OSTEOGENESIS IMPERFECTA [None]
  - EMOTIONAL DISTRESS [None]
  - ANXIETY [None]
  - FEAR OF DISEASE [None]
  - ANHEDONIA [None]
